FAERS Safety Report 25429923 (Version 1)
Quarter: 2025Q2

REPORT INFORMATION
  Report Type: Spontaneous
  Country: GB (occurrence: GB)
  Receive Date: 20250612
  Receipt Date: 20250612
  Transmission Date: 20250717
  Serious: Yes (Other)
  Sender: TEVA
  Company Number: GB-TEVA-VS-3337984

PATIENT
  Age: 44 Year
  Sex: Female

DRUGS (1)
  1. AJOVY [Suspect]
     Active Substance: FREMANEZUMAB-VFRM
     Indication: Migraine with aura
     Dosage: 225MG/1.5ML
     Route: 065
     Dates: start: 202304

REACTIONS (41)
  - Disability [Unknown]
  - Myalgia [Unknown]
  - Hyperacusis [Unknown]
  - Disturbance in attention [Unknown]
  - Poor quality sleep [Unknown]
  - Loss of personal independence in daily activities [Unknown]
  - Depression [Unknown]
  - Anxiety [Unknown]
  - Conversion disorder [Unknown]
  - Fatigue [Unknown]
  - Vision blurred [Unknown]
  - Illness [Unknown]
  - Brain fog [Unknown]
  - Abdominal distension [Unknown]
  - Balance disorder [Unknown]
  - Irritability [Unknown]
  - Constipation [Unknown]
  - Nausea [Unknown]
  - Chills [Unknown]
  - Pruritus [Unknown]
  - Gait disturbance [Unknown]
  - Nocturia [Unknown]
  - Libido decreased [Unknown]
  - Decreased appetite [Unknown]
  - Cushingoid [Unknown]
  - Sensitive skin [Unknown]
  - Premenstrual syndrome [Unknown]
  - Paraesthesia [Unknown]
  - Alcohol intolerance [Unknown]
  - Malaise [Unknown]
  - Dizziness [Unknown]
  - Amnesia [Unknown]
  - Hypoaesthesia [Unknown]
  - Migraine [Unknown]
  - Emotional disorder [Unknown]
  - Vitreous floaters [Unknown]
  - Impatience [Unknown]
  - Dry mouth [Unknown]
  - Flatulence [Unknown]
  - Weight increased [Unknown]
  - Photophobia [Unknown]

NARRATIVE: CASE EVENT DATE: 20241001
